FAERS Safety Report 9431973 (Version 3)
Quarter: 2014Q1

REPORT INFORMATION
  Report Type: Spontaneous
  Country: US (occurrence: US)
  Receive Date: 20130731
  Receipt Date: 20140226
  Transmission Date: 20141002
  Serious: Yes (Death)
  Sender: FDA-Public Use
  Company Number: US-BRISTOL-MYERS SQUIBB COMPANY-19142843

PATIENT
  Age: 60 Year
  Sex: Female

DRUGS (5)
  1. BYETTA PEN DISPOSABLE [Suspect]
     Dosage: 5MCG PEN SOLUTION 250MCG/ML
     Route: 058
     Dates: start: 200711
  2. EFFEXOR [Concomitant]
     Indication: DEPRESSION
  3. PRILOSEC [Concomitant]
  4. EFFEXOR [Concomitant]
  5. PRILOSEC [Concomitant]

REACTIONS (1)
  - Pancreatic carcinoma [Fatal]
